FAERS Safety Report 18214573 (Version 2)
Quarter: 2020Q4

REPORT INFORMATION
  Report Type: Spontaneous
  Country: GB (occurrence: GB)
  Receive Date: 20200831
  Receipt Date: 20201106
  Transmission Date: 20210113
  Serious: Yes (Other)
  Sender: FDA-Public Use
  Company Number: NVSC2020GB238732

PATIENT
  Age: 3 Year
  Sex: Female

DRUGS (2)
  1. OMNITROPE [Suspect]
     Active Substance: SOMATROPIN
     Indication: PRODUCT USED FOR UNKNOWN INDICATION
     Dosage: 0.35 MG, QD
     Route: 065
     Dates: start: 20191126
  2. OMNITROPE [Suspect]
     Active Substance: SOMATROPIN
     Dosage: UNK
     Route: 065
     Dates: start: 20200801, end: 20200818

REACTIONS (3)
  - Hypersomnia [Unknown]
  - Hemiplegia [Unknown]
  - Energy increased [Unknown]

NARRATIVE: CASE EVENT DATE: 20191204
